FAERS Safety Report 19579592 (Version 1)
Quarter: 2021Q3

REPORT INFORMATION
  Report Type: Spontaneous
  Country: US (occurrence: US)
  Receive Date: 20210720
  Receipt Date: 20210720
  Transmission Date: 20211014
  Serious: Yes (Other)
  Sender: FDA-Public Use
  Company Number: US-DRREDDYS-SPO/USA/21/0137808

PATIENT
  Age: 20 Year
  Sex: Female

DRUGS (2)
  1. ZENATANE [Suspect]
     Active Substance: ISOTRETINOIN
     Indication: PRODUCT USED FOR UNKNOWN INDICATION
     Dosage: RMA ISSUE DATE:3/19/2021 12:47:07 PM, 4/20/2021 3:59:34 PM, 5/21/2021 4:42:27 PM, 6/22/2021 8:45:47
     Dates: start: 20210218, end: 20210709
  2. ZENATANE [Suspect]
     Active Substance: ISOTRETINOIN
     Dosage: RMA ISSUE DATE: 18/FEBRUARY/2021 11:38:33 AM

REACTIONS (1)
  - Exposure during pregnancy [Unknown]
